FAERS Safety Report 10379866 (Version 1)
Quarter: 2014Q1

REPORT INFORMATION
  Report Type: Spontaneous
  Country: US (occurrence: None)
  Receive Date: 20140306
  Receipt Date: 20140306
  Transmission Date: 20141002
  Serious: Yes (Hospitalization)
  Sender: FDA-Public Use
  Company Number: 163-21880-13090538

PATIENT
  Age: 87 Year
  Sex: Male

DRUGS (3)
  1. REVLIMID (LENALIDOMIDE) (2.5 MILLIGRAM, CAPSULES) [Suspect]
     Indication: MYELODYSPLASTIC SYNDROME
     Route: 048
     Dates: start: 20130613
  2. PROCRIT (ERYTHROPOIETIN) [Concomitant]
  3. TYLENOL (PARACETAMOL) [Concomitant]

REACTIONS (1)
  - Malaise [None]
